FAERS Safety Report 4822200-9 (Version None)
Quarter: 2005Q4

REPORT INFORMATION
  Report Type: 
  Country: None (occurrence: None)
  Receive Date: 20051102
  Receipt Date: 20051018
  Transmission Date: 20060501
  Serious: Yes (Hospitalization)
  Sender: FDA-Public Use
  Company Number: US_990623964

PATIENT
  Age: 71 Year
  Sex: Female
  Weight: 50 kg

DRUGS (4)
  1. EVISTA [Suspect]
     Indication: OSTEOPOROSIS
     Dosage: 60 MG/1 DAY
     Dates: start: 19980904
  2. ZANTAC [Concomitant]
  3. NEXIUM [Concomitant]
  4. NASACORT AQ (TRIAMCINOLONE ACETONIDE) [Concomitant]

REACTIONS (8)
  - ASTHENIA [None]
  - BONE DENSITY DECREASED [None]
  - EXERCISE LACK OF [None]
  - EXOSTOSIS [None]
  - LUNG NEOPLASM [None]
  - PAIN IN EXTREMITY [None]
  - PNEUMONIA [None]
  - SPINAL DISORDER [None]
